FAERS Safety Report 4333683-5 (Version None)
Quarter: 2004Q2

REPORT INFORMATION
  Report Type: 
  Country: None (occurrence: None)
  Receive Date: 20040402
  Receipt Date: 20040324
  Transmission Date: 20050107
  Serious: Yes (Other)
  Sender: FDA-Public Use
  Company Number: 200403580

PATIENT
  Sex: Female

DRUGS (1)
  1. EXTRA STRENGTH TYLENOL [Suspect]

REACTIONS (4)
  - HEPATIC ENZYME INCREASED [None]
  - INTENTIONAL OVERDOSE [None]
  - PLATELET COUNT DECREASED [None]
  - WHITE BLOOD CELL COUNT DECREASED [None]
